FAERS Safety Report 6676658-3 (Version None)
Quarter: 2010Q2

REPORT INFORMATION
  Report Type: 
  Country: None (occurrence: None)
  Receive Date: 20100412
  Receipt Date: 20100408
  Transmission Date: 20101027
  Serious: Yes (Death)
  Sender: FDA-Public Use
  Company Number: PHHY2009JP50974

PATIENT
  Sex: Male

DRUGS (13)
  1. TASIGNA [Suspect]
     Indication: CHRONIC MYELOID LEUKAEMIA
     Dosage: 400 MG/DAY
     Route: 048
     Dates: start: 20091022, end: 20091111
  2. PURSENNID [Concomitant]
     Dosage: 1 DF, UNK
     Route: 048
     Dates: start: 20091022, end: 20091108
  3. THYRADIN S [Concomitant]
     Dosage: 0.5 DF, UNK
     Route: 048
     Dates: start: 20091026, end: 20091111
  4. LANTUS [Concomitant]
     Dosage: 8 DF, UNK
     Dates: start: 20091029, end: 20091110
  5. ALOSENN [Concomitant]
     Dosage: 0.5 G, UNK
     Route: 048
     Dates: start: 20091102, end: 20091108
  6. ARTIST [Concomitant]
     Dosage: 5 MG, UNK
     Route: 048
     Dates: start: 20091022, end: 20091027
  7. SALOBEL [Concomitant]
     Dosage: 200 MG, UNK
     Route: 048
     Dates: start: 20091022, end: 20091108
  8. MYSLEE [Concomitant]
     Dosage: 10 MG, UNK
     Route: 048
     Dates: start: 20091022, end: 20091103
  9. HALCION [Concomitant]
     Dosage: 0.25 MG, UNK
     Route: 048
     Dates: start: 20091104, end: 20091110
  10. MAGMITT [Concomitant]
     Dosage: 1500 MG, UNK
     Route: 048
     Dates: start: 20091104, end: 20091110
  11. HARNAL [Concomitant]
     Dosage: 0.2 MG, UNK
     Route: 048
     Dates: start: 20091102, end: 20091110
  12. HUMULIN R [Concomitant]
     Dosage: 50 DF, UNK
     Route: 042
     Dates: start: 20091110, end: 20091112
  13. UNSPECIFIED [Concomitant]
     Dosage: 14 DF
     Route: 065
     Dates: start: 20091022, end: 20091110

REACTIONS (2)
  - BLOOD LACTATE DEHYDROGENASE INCREASED [None]
  - INTERSTITIAL LUNG DISEASE [None]
